FAERS Safety Report 11444422 (Version 1)
Quarter: 2015Q3

REPORT INFORMATION
  Report Type: Report from Study
  Country: BR (occurrence: BR)
  Receive Date: 20150902
  Receipt Date: 20150902
  Transmission Date: 20151125
  Serious: Yes (Death)
  Sender: FDA-Public Use
  Company Number: PHHY2015BR102812

PATIENT
  Sex: Male
  Weight: 65 kg

DRUGS (2)
  1. NEOTIAPIM [Suspect]
     Active Substance: QUETIAPINE
     Dosage: 100 MG, BID
     Route: 048
     Dates: start: 201412, end: 201502
  2. NEOTIAPIM [Suspect]
     Active Substance: QUETIAPINE
     Indication: DEMENTIA ALZHEIMER^S TYPE
     Dosage: 25 MG, UNK
     Route: 065
     Dates: start: 201508

REACTIONS (10)
  - Pneumonia aspiration [Fatal]
  - Aggression [Unknown]
  - Fall [Fatal]
  - Lung disorder [Fatal]
  - Blood pressure decreased [Fatal]
  - Hallucination [Unknown]
  - Respiratory disorder [Fatal]
  - Memory impairment [Unknown]
  - Acute respiratory failure [Fatal]
  - Dementia [Fatal]
